FAERS Safety Report 17230139 (Version 1)
Quarter: 2020Q1

REPORT INFORMATION
  Report Type: Report from Study
  Country: US (occurrence: US)
  Receive Date: 20200103
  Receipt Date: 20200103
  Transmission Date: 20200409
  Serious: Yes (Death)
  Sender: FDA-Public Use
  Company Number: US-ROCHE-2479851

PATIENT
  Age: 76 Year
  Sex: Male

DRUGS (2)
  1. AVASTIN [Suspect]
     Active Substance: BEVACIZUMAB
     Indication: GASTROINTESTINAL HAEMORRHAGE
     Dosage: DATE OF TREATMENT:08/17/2016, 08/31/2016 ,09/14/2016, 09/28/2016, 10/12/2016,?10/26/2016, 01/23/2017
     Route: 042
  2. AVASTIN [Suspect]
     Active Substance: BEVACIZUMAB
     Indication: EPISTAXIS
     Dosage: INFUSE 10MG/KG INTRAVENOUSLY EVERY 4 WEEK(S)
     Route: 042

REACTIONS (3)
  - Intentional product use issue [Unknown]
  - Off label use [Unknown]
  - Death [Fatal]

NARRATIVE: CASE EVENT DATE: 20191117
